FAERS Safety Report 5247668-8 (Version None)
Quarter: 2007Q1

REPORT INFORMATION
  Report Type: 
  Country: None (occurrence: None)
  Receive Date: 20070222
  Receipt Date: 20070206
  Transmission Date: 20070707
  Serious: Yes (Hospitalization)
  Sender: FDA-Public Use
  Company Number: 010906

PATIENT
  Age: 35 Year
  Sex: Male

DRUGS (1)
  1. ANTABUSE [Suspect]
     Indication: ALCOHOLISM
     Dosage: IMPLANT

REACTIONS (12)
  - ACUTE HEPATIC FAILURE [None]
  - BLOOD ALCOHOL INCREASED [None]
  - BLOOD LACTIC ACID INCREASED [None]
  - COAGULOPATHY [None]
  - ENCEPHALOPATHY [None]
  - FOETOR HEPATICUS [None]
  - HAEMODIALYSIS [None]
  - HYPOTENSION [None]
  - OEDEMA DUE TO HEPATIC DISEASE [None]
  - RENAL FAILURE [None]
  - SOMNOLENCE [None]
  - THROMBOCYTOPENIA [None]
